FAERS Safety Report 6739570-7 (Version None)
Quarter: 2010Q2

REPORT INFORMATION
  Report Type: 
  Country: None (occurrence: None)
  Receive Date: 20100525
  Receipt Date: 20100318
  Transmission Date: 20101027
  Serious: No
  Sender: FDA-Public Use
  Company Number: US-AMGEN-KDL392013

PATIENT
  Sex: Male
  Weight: 77.2 kg

DRUGS (4)
  1. NPLATE [Suspect]
     Indication: IDIOPATHIC THROMBOCYTOPENIC PURPURA
     Route: 058
     Dates: start: 20090820
  2. RITUXAN [Concomitant]
     Dates: start: 20091018, end: 20091029
  3. CORTICOSTEROIDS [Concomitant]
     Dates: start: 20060727
  4. PREDNISONE TAB [Concomitant]

REACTIONS (2)
  - EYE PAIN [None]
  - HEADACHE [None]
